FAERS Safety Report 4929890-0 (Version None)
Quarter: 2006Q1

REPORT INFORMATION
  Report Type: 
  Country: None (occurrence: None)
  Receive Date: 20060227
  Receipt Date: 20060213
  Transmission Date: 20060701
  Serious: Yes (Other)
  Sender: FDA-Public Use
  Company Number: 2004099924

PATIENT
  Sex: Female
  Weight: 68.0396 kg

DRUGS (9)
  1. NEURONTIN [Suspect]
     Indication: NEUROPATHY
  2. LYRICA [Suspect]
     Indication: NEUROPATHY
     Dosage: 150 MG (50 MG, 3 IN 1 D)
     Dates: start: 20050101
  3. ACETAMINOPHEN 2/CODEINE (CODEINE, PARACETAMOL) [Concomitant]
  4. ASPIRIN [Concomitant]
  5. VITACAL (CALCIUM, VITAMIN D NOS) [Concomitant]
  6. NASACORT [Concomitant]
  7. NADOLOL [Concomitant]
  8. AMILORIDE (AMILORIDE) [Concomitant]
  9. HYDRALAZINE HCL [Concomitant]

REACTIONS (17)
  - AMNESIA [None]
  - BALANCE DISORDER [None]
  - BLOOD GLUCOSE INCREASED [None]
  - CONDITION AGGRAVATED [None]
  - DEPRESSION [None]
  - DRUG INEFFECTIVE [None]
  - DYSKINESIA [None]
  - FALL [None]
  - FATIGUE [None]
  - HAND FRACTURE [None]
  - INSOMNIA [None]
  - JOINT SPRAIN [None]
  - LOSS OF EMPLOYMENT [None]
  - NEUROPATHY [None]
  - SOMNOLENCE [None]
  - STRESS [None]
  - TREMOR [None]
